FAERS Safety Report 6731679-7 (Version None)
Quarter: 2010Q2

REPORT INFORMATION
  Report Type: 
  Country: None (occurrence: None)
  Receive Date: 20100519
  Receipt Date: 20100509
  Transmission Date: 20101027
  Serious: Yes (Other)
  Sender: FDA-Public Use
  Company Number: US-RB-009487-10

PATIENT
  Age: 26 Year
  Sex: Female

DRUGS (1)
  1. MUCINEX D [Suspect]
     Indication: MULTIPLE ALLERGIES
     Dosage: TOOK 1 TABLET EVERY 24 HOURS FOR THREE WEEKS
     Route: 048
     Dates: start: 20100418

REACTIONS (2)
  - HAEMOPTYSIS [None]
  - INCORRECT DRUG ADMINISTRATION DURATION [None]
